FAERS Safety Report 8278066-0 (Version None)
Quarter: 2012Q2

REPORT INFORMATION
  Report Type: 
  Country: None (occurrence: None)
  Receive Date: 20120412
  Receipt Date: 20120403
  Transmission Date: 20120825
  Serious: Yes (Hospitalization)
  Sender: FDA-Public Use
  Company Number: PHHY2012TW028668

PATIENT
  Age: 18 Year
  Sex: Female

DRUGS (1)
  1. BUPROPION HCL [Suspect]
     Dosage: 2.85 G, UNK

REACTIONS (10)
  - MENTAL STATUS CHANGES [None]
  - METABOLIC ACIDOSIS [None]
  - VENTRICULAR TACHYCARDIA [None]
  - GRAND MAL CONVULSION [None]
  - BRADYCARDIA [None]
  - INTENTIONAL OVERDOSE [None]
  - DISORIENTATION [None]
  - ELECTROCARDIOGRAM QT PROLONGED [None]
  - SINUS TACHYCARDIA [None]
  - BLOOD PRESSURE DECREASED [None]
